FAERS Safety Report 5151337-2 (Version None)
Quarter: 2006Q4

REPORT INFORMATION
  Report Type: 
  Country: None (occurrence: None)
  Receive Date: 20061115
  Receipt Date: 20061106
  Transmission Date: 20070319
  Serious: Yes (Congenital Anomaly, Other)
  Sender: FDA-Public Use
  Company Number: DE-GLAXOSMITHKLINE-B0445892A

PATIENT

DRUGS (1)
  1. PAROXETINE HCL [Suspect]
     Indication: DRUG USE FOR UNKNOWN INDICATION
     Dosage: 100MG PER DAY

REACTIONS (3)
  - DRUG EXPOSURE DURING PREGNANCY [None]
  - HAEMANGIOMA OF SKIN [None]
  - MELANOCYTIC NAEVUS [None]
